FAERS Safety Report 18517008 (Version 2)
Quarter: 2020Q4

REPORT INFORMATION
  Report Type: Spontaneous
  Country: FR (occurrence: FR)
  Receive Date: 20201118
  Receipt Date: 20201222
  Transmission Date: 20210114
  Serious: Yes (Hospitalization)
  Sender: FDA-Public Use
  Company Number: FR-JNJFOC-20201125881

PATIENT
  Age: 13 Year
  Sex: Female
  Weight: 41 kg

DRUGS (4)
  1. PREDNISOLONE. [Concomitant]
     Active Substance: PREDNISOLONE
     Dosage: 35 MG DAILY DURING 4 WEEKS THEN 20 MG DAILY DURING 4 WEEKS
  2. REMICADE [Suspect]
     Active Substance: INFLIXIMAB
     Indication: COLITIS ULCERATIVE
     Route: 042
     Dates: end: 20200922
  3. POLARAMINE [Concomitant]
     Active Substance: DEXCHLORPHENIRAMINE MALEATE
     Indication: PREMEDICATION
     Dosage: 5MG/ML AT THE DOSE OF 5 MG BY IV ROUTER
     Route: 042
  4. HYDROCORTISONE HEMISUCCINATE [Concomitant]
     Active Substance: HYDROCORTISONE HEMISUCCINATE
     Indication: PREMEDICATION
     Dates: start: 20200922

REACTIONS (2)
  - Anaphylactic reaction [Unknown]
  - Underdose [Unknown]

NARRATIVE: CASE EVENT DATE: 20200922
